FAERS Safety Report 7421023-4 (Version None)
Quarter: 2011Q2

REPORT INFORMATION
  Report Type: 
  Country: None (occurrence: None)
  Receive Date: 20110418
  Receipt Date: 20110406
  Transmission Date: 20111010
  Serious: Yes (Disabling)
  Sender: FDA-Public Use
  Company Number: FR-ROCHE-770140

PATIENT
  Sex: Male

DRUGS (2)
  1. AVASTIN [Suspect]
     Dosage: PER CYCLE, ROUTE : IN INFUSION
     Route: 042
     Dates: start: 20080901, end: 20090306
  2. ROFERON-A [Suspect]
     Route: 058
     Dates: start: 20080901, end: 20090316

REACTIONS (2)
  - RETINAL VEIN OCCLUSION [None]
  - VISUAL IMPAIRMENT [None]
